FAERS Safety Report 18576694 (Version 2)
Quarter: 2020Q4

REPORT INFORMATION
  Report Type: Spontaneous
  Country: RU (occurrence: RU)
  Receive Date: 20201203
  Receipt Date: 20201216
  Transmission Date: 20210114
  Serious: Yes (Hospitalization)
  Sender: FDA-Public Use
  Company Number: RU-BAYER-2020-261419

PATIENT
  Age: 49 Year

DRUGS (6)
  1. MOXIFLOXACIN ORAL [Suspect]
     Active Substance: MOXIFLOXACIN
     Indication: COVID-19
     Dosage: UNK
  2. ENOXAPARIN [Concomitant]
     Active Substance: ENOXAPARIN
     Dosage: 80 MG, BID
     Dates: start: 20200419
  3. CEFOPERAZONE [Concomitant]
     Active Substance: CEFOPERAZONE
     Dosage: UNK
     Dates: start: 20200419
  4. SULBACTAM [Concomitant]
     Active Substance: SULBACTAM
     Dosage: UNK
     Dates: start: 20200419
  5. OXYGEN. [Concomitant]
     Active Substance: OXYGEN
     Dosage: 5-7 L/MIN
     Dates: start: 20200419, end: 20200419
  6. OXYGEN. [Concomitant]
     Active Substance: OXYGEN
     Dosage: 13 L/MIN
     Dates: start: 20200420, end: 20200420

REACTIONS (3)
  - Respiratory failure [Recovering/Resolving]
  - Product use in unapproved indication [None]
  - Off label use [None]

NARRATIVE: CASE EVENT DATE: 20200420
